FAERS Safety Report 10726547 (Version 1)
Quarter: 2015Q1

REPORT INFORMATION
  Report Type: Spontaneous
  Country: US (occurrence: None)
  Receive Date: 20150120
  Receipt Date: 20150120
  Transmission Date: 20150721
  Serious: Yes (Hospitalization)
  Sender: FDA-Public Use
  Company Number: None

PATIENT
  Age: 57 Year
  Sex: Female
  Weight: 84.82 kg

DRUGS (12)
  1. PROZAC [Concomitant]
     Active Substance: FLUOXETINE HYDROCHLORIDE
  2. ASPIRIN. [Concomitant]
     Active Substance: ASPIRIN
  3. DAILY VITAMIN [Concomitant]
     Active Substance: VITAMINS
  4. RANIBIZUMAB [Suspect]
     Active Substance: RANIBIZUMAB
  5. NASONEX [Concomitant]
     Active Substance: MOMETASONE FUROATE
  6. AMARYL [Concomitant]
     Active Substance: GLIMEPIRIDE
  7. NITROSTAT [Concomitant]
     Active Substance: NITROGLYCERIN
  8. VOLTAREN [Concomitant]
     Active Substance: DICLOFENAC SODIUM
  9. COZAAR [Concomitant]
     Active Substance: LOSARTAN POTASSIUM
  10. LEVEMIR [Concomitant]
     Active Substance: INSULIN DETEMIR
  11. NORVASC [Concomitant]
     Active Substance: AMLODIPINE BESYLATE
  12. CALCIUM CARBONATE/VITAMIN D2 [Concomitant]

REACTIONS (3)
  - Vomiting [None]
  - Dysarthria [None]
  - Vertigo [None]

NARRATIVE: CASE EVENT DATE: 20141208
